FAERS Safety Report 24343426 (Version 1)
Quarter: 2024Q3

REPORT INFORMATION
  Report Type: Spontaneous
  Country: US (occurrence: None)
  Receive Date: 20240920
  Receipt Date: 20240920
  Transmission Date: 20241017
  Serious: Yes (Hospitalization)
  Sender: Public
  Company Number: None

PATIENT
  Sex: Male

DRUGS (11)
  1. DEFERASIROX [Suspect]
     Active Substance: DEFERASIROX
     Dosage: OTHER FREQUENCY : 2TABLETSDAILY;?
     Dates: start: 20240228
  2. ASPIRIN CHW [Concomitant]
  3. FLUCONAZOLE TAB [Concomitant]
  4. LORAZEPAM [Concomitant]
     Active Substance: LORAZEPAM
  5. MAGNESIUM [Concomitant]
     Active Substance: MAGNESIUM
  6. OXYCODONE [Concomitant]
     Active Substance: OXYCODONE
  7. OYSTER SHELL TAB [Concomitant]
  8. PANTOPRAZOLE TAB [Concomitant]
  9. TACROLIMUS [Concomitant]
     Active Substance: TACROLIMUS
  10. VITAMIN C [Suspect]
     Active Substance: ASCORBIC ACID
  11. VITAMIN D3 [Concomitant]

REACTIONS (2)
  - Hospitalisation [None]
  - Intentional dose omission [None]
